FAERS Safety Report 15041897 (Version 4)
Quarter: 2019Q2

REPORT INFORMATION
  Report Type: Report from Study
  Country: FR (occurrence: FR)
  Receive Date: 20180621
  Receipt Date: 20190621
  Transmission Date: 20190711
  Serious: Yes (Death, Other)
  Sender: FDA-Public Use
  Company Number: FR-JAZZ-2018-FR-009563

PATIENT

DRUGS (1)
  1. DEFITELIO [Suspect]
     Active Substance: DEFIBROTIDE SODIUM
     Indication: PROPHYLAXIS
     Dosage: 25 MG/KG, QD
     Dates: start: 20151116, end: 20151209

REACTIONS (5)
  - Dyspnoea [Unknown]
  - Gastric ulcer haemorrhage [Unknown]
  - Off label use [Unknown]
  - Death [Fatal]
  - Aspergillus infection [Unknown]

NARRATIVE: CASE EVENT DATE: 20151116
